FAERS Safety Report 5650485-8 (Version None)
Quarter: 2008Q1

REPORT INFORMATION
  Report Type: 
  Country: None (occurrence: None)
  Receive Date: 20080304
  Receipt Date: 20080304
  Transmission Date: 20080703
  Serious: Yes (Other)
  Sender: FDA-Public Use
  Company Number: None

PATIENT
  Sex: Female
  Weight: 58.0604 kg

DRUGS (13)
  1. ATENOLOL [Suspect]
     Indication: BLOOD PRESSURE
     Dosage: 25 MG  2 X DAY  PO
     Route: 048
     Dates: start: 20071016, end: 20071210
  2. AMLODIPINE [Concomitant]
  3. ASPIRIN [Concomitant]
  4. ATACAND [Concomitant]
  5. CALCIUM [Concomitant]
  6. HUMALOG [Concomitant]
  7. NIFEREX [Concomitant]
  8. LANTUS [Concomitant]
  9. LEVOBUNALOL [Concomitant]
  10. PRAVASTATIN [Concomitant]
  11. SYNTHROID [Concomitant]
  12. MULTI-VITAMIN [Concomitant]
  13. PRILOSEC [Concomitant]

REACTIONS (7)
  - BLOOD PRESSURE INCREASED [None]
  - FEELING JITTERY [None]
  - GAIT DISTURBANCE [None]
  - HEART RATE INCREASED [None]
  - PHARMACEUTICAL PRODUCT COMPLAINT [None]
  - REACTION TO DRUG EXCIPIENTS [None]
  - TREMOR [None]
